FAERS Safety Report 23421861 (Version 2)
Quarter: 2024Q1

REPORT INFORMATION
  Report Type: Report from Study
  Country: ZA (occurrence: ZA)
  Receive Date: 20240119
  Receipt Date: 20240206
  Transmission Date: 20240410
  Serious: Yes (Other)
  Sender: FDA-Public Use
  Company Number: ZA-BAYER-2024A010305

PATIENT
  Sex: Male

DRUGS (1)
  1. EYLEA [Suspect]
     Active Substance: AFLIBERCEPT
     Indication: Macular oedema
     Dosage: 1XVIAL, SOLUTION FOR INJECTION, STRENGTH- 40MG/ML
     Dates: start: 20220922

REACTIONS (3)
  - Blindness unilateral [Not Recovered/Not Resolved]
  - Retinal detachment [Not Recovered/Not Resolved]
  - Visual impairment [Unknown]
